FAERS Safety Report 5323699-4 (Version None)
Quarter: 2007Q2

REPORT INFORMATION
  Report Type: 
  Country: None (occurrence: None)
  Receive Date: 20070510
  Receipt Date: 20070510
  Transmission Date: 20071010
  Serious: No
  Sender: FDA-Public Use
  Company Number: None

PATIENT
  Sex: Male
  Weight: 78.9259 kg

DRUGS (3)
  1. SPIRIVA [Suspect]
     Indication: DYSPNOEA
     Dosage: 18 MCG INHALE 1/DAY
     Route: 055
     Dates: start: 20061101
  2. SPIRIVA [Suspect]
     Indication: DYSPNOEA
     Dosage: 18 MCG INHALE 1/DAY
     Route: 055
     Dates: start: 20070101
  3. SPIRIVA [Suspect]
     Indication: DYSPNOEA
     Dosage: 18 MCG INHALE 1/DAY
     Route: 055
     Dates: start: 20070301

REACTIONS (1)
  - PROSTATIC SPECIFIC ANTIGEN INCREASED [None]
